FAERS Safety Report 10095536 (Version 1)
Quarter: 2014Q2

REPORT INFORMATION
  Report Type: Report from Study
  Country: US (occurrence: US)
  Receive Date: 20140422
  Receipt Date: 20140422
  Transmission Date: 20141212
  Serious: Yes (Other)
  Sender: FDA-Public Use
  Company Number: US-AMGEN-USACT2014027509

PATIENT
  Age: 38 Year
  Sex: Female

DRUGS (7)
  1. PEGFILGRASTIM [Suspect]
     Indication: PRODUCT USED FOR UNKNOWN INDICATION
     Dosage: 6 MG, ON DAY 4
     Route: 058
  2. INOTUZUMAB OZOGAMICIN [Concomitant]
     Dosage: 1.8 MG/M2, OVER 1 HOUR ON DAY 3
     Route: 042
     Dates: start: 201311
  3. DEXAMETHASONE SODIUM PHOSPHATE [Concomitant]
     Dosage: 20 MG, DAILY FOR 4 DAYS ON DAY 1 AND 11 4,
     Route: 042
  4. MESNA [Concomitant]
     Dosage: 300 MG/M2, DAILY OVER 24 HOURS FOR 3 DAYS ON DAYS 1-3,
     Route: 042
  5. CYCLOPHOSPHAMIDE [Concomitant]
     Dosage: 150 MG/M2, OVER 3 HOURS (ILLEGIBLE) DAY ON DAYS 1-3
     Route: 042
  6. VINCRISTINE [Concomitant]
     Dosage: 2 MG, DAY 1 AND DAY 8
     Route: 042
  7. RITUXIMAB [Concomitant]
     Dosage: 375 MG/M2, ON DAY 2 AND DAY 8 (CYCLES ILLEGIBLE AND 3 ONLY),
     Route: 042

REACTIONS (1)
  - Febrile neutropenia [Recovered/Resolved]
